FAERS Safety Report 4977677-5 (Version None)
Quarter: 2006Q2

REPORT INFORMATION
  Report Type: 
  Country: None (occurrence: None)
  Receive Date: 20060420
  Receipt Date: 20050815
  Transmission Date: 20061013
  Serious: No
  Sender: FDA-Public Use
  Company Number: US-GLAXOSMITHKLINE-A0570265A

PATIENT
  Age: 61 Year
  Sex: Female

DRUGS (7)
  1. ESKALITH [Suspect]
     Dosage: 450MG PER DAY
     Route: 048
     Dates: start: 20050810, end: 20050813
  2. CODEINE [Concomitant]
  3. ASPIRIN [Concomitant]
  4. PLAQUENIL [Concomitant]
  5. CLONAZEPAM [Concomitant]
  6. EVOXAC [Concomitant]
  7. DRISDOL [Concomitant]

REACTIONS (4)
  - AGITATION [None]
  - DISORIENTATION [None]
  - FATIGUE [None]
  - TEMPERATURE REGULATION DISORDER [None]
